FAERS Safety Report 13502463 (Version 1)
Quarter: 2017Q2

REPORT INFORMATION
  Report Type: Spontaneous
  Country: US (occurrence: US)
  Receive Date: 20170502
  Receipt Date: 20170502
  Transmission Date: 20170830
  Serious: No
  Sender: FDA-Public Use
  Company Number: US-SUN PHARMACEUTICAL INDUSTRIES LTD-2017US-138458

PATIENT
  Sex: Female

DRUGS (2)
  1. BROMSITE 0.075% [Suspect]
     Active Substance: BROMFENAC SODIUM
     Indication: CORNEAL ABRASION
     Route: 065
  2. BESIVANCE [Suspect]
     Active Substance: BESIFLOXACIN
     Indication: PRODUCT USED FOR UNKNOWN INDICATION
     Route: 065

REACTIONS (6)
  - Eyelid irritation [Unknown]
  - Eye pain [Not Recovered/Not Resolved]
  - Product use in unapproved indication [Unknown]
  - Discomfort [Unknown]
  - Eye irritation [Not Recovered/Not Resolved]
  - Erythema of eyelid [Unknown]
